FAERS Safety Report 8742726 (Version 4)
Quarter: 2013Q2

REPORT INFORMATION
  Report Type: Spontaneous
  Country: JP (occurrence: JP)
  Receive Date: 20120824
  Receipt Date: 20130524
  Transmission Date: 20140414
  Serious: Yes (Life-Threatening, Hospitalization)
  Sender: FDA-Public Use
  Company Number: JP-B.I. PHARMACEUTICALS,INC./RIDGEFIELD-2012-BP-20343NB

PATIENT
  Age: 78 Year
  Sex: Male
  Weight: 54.5 kg

DRUGS (3)
  1. PRADAXA [Suspect]
     Indication: ATRIAL FIBRILLATION
     Dosage: 220 MG
     Route: 048
     Dates: start: 20120721, end: 20120811
  2. PARIET [Concomitant]
     Dosage: 10 MG
     Route: 048
  3. ALEVIATIN [Concomitant]
     Dosage: 200 MG
     Route: 048

REACTIONS (5)
  - Intracardiac thrombus [Recovered/Resolved]
  - Intracardiac thrombus [Unknown]
  - Drug effect incomplete [Unknown]
  - Intracardiac thrombus [Unknown]
  - Peripheral embolism [Unknown]
